FAERS Safety Report 4341234-4 (Version None)
Quarter: 2004Q2

REPORT INFORMATION
  Report Type: 
  Country: None (occurrence: None)
  Receive Date: 20040419
  Receipt Date: 20040412
  Transmission Date: 20050107
  Serious: Yes (Life-Threatening, Hospitalization, Disabling)
  Sender: FDA-Public Use
  Company Number: US-MERCK-0404USA01195

PATIENT
  Age: 77 Year
  Sex: Female

DRUGS (10)
  1. ASPIRIN [Concomitant]
     Route: 065
  2. PLETAL [Concomitant]
     Route: 065
  3. DIGOXIN [Concomitant]
     Route: 065
  4. PEPCID [Concomitant]
     Route: 048
  5. TRICOR [Concomitant]
     Route: 065
  6. CENTRUM [Concomitant]
     Route: 065
  7. SINGULAIR [Suspect]
     Route: 048
     Dates: start: 20030101
  8. NIASPAN [Concomitant]
     Route: 065
  9. PREDNISONE [Concomitant]
     Route: 065
  10. CRESTOR [Concomitant]
     Route: 065

REACTIONS (3)
  - DEPRESSION [None]
  - MUSCULOSKELETAL DISORDER [None]
  - PERIPHERAL VASCULAR DISORDER [None]
